FAERS Safety Report 4781954-0 (Version None)
Quarter: 2005Q3

REPORT INFORMATION
  Report Type: 
  Country: None (occurrence: None)
  Receive Date: 20050928
  Receipt Date: 20041119
  Transmission Date: 20060218
  Serious: Yes (Life-Threatening, Hospitalization, Disabling)
  Sender: FDA-Public Use
  Company Number: DE-MERCK-0411DEU00426

PATIENT
  Age: 40 Year
  Sex: Male
  Weight: 94 kg

DRUGS (4)
  1. VIOXX [Suspect]
     Indication: BONE PAIN
     Route: 048
     Dates: start: 20020101, end: 20040101
  2. VIOXX [Suspect]
     Indication: ARTHRALGIA
     Route: 048
     Dates: start: 20020101, end: 20040101
  3. METOPROLOL TARTRATE [Concomitant]
     Route: 065
     Dates: start: 20021001
  4. OMEPRAZOLE SODIUM [Concomitant]
     Route: 065
     Dates: start: 20021001

REACTIONS (6)
  - ANEURYSM [None]
  - ARRHYTHMIA [None]
  - CARDIOVASCULAR DISORDER [None]
  - CEREBELLAR INFARCTION [None]
  - INTERVERTEBRAL DISC PROTRUSION [None]
  - SLEEP DISORDER [None]
